FAERS Safety Report 21082904 (Version 1)
Quarter: 2022Q3

REPORT INFORMATION
  Report Type: Spontaneous
  Country: FR (occurrence: FR)
  Receive Date: 20220714
  Receipt Date: 20220714
  Transmission Date: 20221026
  Serious: Yes (Hospitalization)
  Sender: FDA-Public Use
  Company Number: None

PATIENT
  Age: 17 Year
  Sex: Female
  Weight: 41.5 kg

DRUGS (3)
  1. AMOXICILLIN [Suspect]
     Active Substance: AMOXICILLIN
     Indication: Dental care
     Dosage: UNK (NON PRECISE)
     Route: 048
     Dates: start: 20190916
  2. ADVIL [Suspect]
     Active Substance: IBUPROFEN
     Indication: Dental care
     Dosage: UNK (NON PRECISE)
     Route: 048
     Dates: start: 20190916
  3. CHLORHEXIDINE GLUCONATE [Suspect]
     Active Substance: CHLORHEXIDINE GLUCONATE
     Indication: Dental care
     Dosage: UNK (NON PRECISE) (SOLUTION POUR BAIN DE BOUCHE)
     Route: 048
     Dates: start: 20190916

REACTIONS (1)
  - Acute generalised exanthematous pustulosis [Recovered/Resolved]

NARRATIVE: CASE EVENT DATE: 20190921
